FAERS Safety Report 8288963-8 (Version None)
Quarter: 2012Q2

REPORT INFORMATION
  Report Type: 
  Country: None (occurrence: None)
  Receive Date: 20120412
  Receipt Date: 20120330
  Transmission Date: 20120825
  Serious: Yes (Life-Threatening)
  Sender: FDA-Public Use
  Company Number: 1009726

PATIENT
  Age: 72 Year
  Sex: Female

DRUGS (4)
  1. CANDESARTAN CILEXETIL [Concomitant]
  2. PACLITAXEL [Suspect]
     Indication: OVARIAN CANCER
     Dosage: 280 MG (MILLIGRAMS), INTRAVENOUS
     Route: 042
     Dates: start: 20110803, end: 20110830
  3. ATORVASTATIN CALCIUM [Concomitant]
  4. ALLOPURINOL [Concomitant]

REACTIONS (17)
  - CYANOSIS [None]
  - PULMONARY OEDEMA [None]
  - LOSS OF CONSCIOUSNESS [None]
  - HEAD INJURY [None]
  - MITRAL VALVE STENOSIS [None]
  - HYPOTENSION [None]
  - CARDIO-RESPIRATORY ARREST [None]
  - METABOLIC ACIDOSIS [None]
  - PARAESTHESIA [None]
  - SYNCOPE [None]
  - HYPERVENTILATION [None]
  - PRURITUS [None]
  - HEART RATE INCREASED [None]
  - URTICARIA [None]
  - FLUSHING [None]
  - DYSPNOEA [None]
  - BLOOD PRESSURE INCREASED [None]
